FAERS Safety Report 16332011 (Version 1)
Quarter: 2019Q2

REPORT INFORMATION
  Report Type: Spontaneous
  Country: US (occurrence: US)
  Receive Date: 20190412
  Receipt Date: 20190412
  Transmission Date: 20190711
  Serious: No
  Sender: FDA-Public Use
  Company Number: None

PATIENT
  Sex: Male

DRUGS (1)
  1. STIVARGA [Suspect]
     Active Substance: REGORAFENIB
     Indication: SMALL INTESTINE CARCINOMA
     Route: 048
     Dates: start: 20190305

REACTIONS (3)
  - Musculoskeletal pain [None]
  - Dysphonia [None]
  - Musculoskeletal stiffness [None]
